FAERS Safety Report 5012072-4 (Version None)
Quarter: 2006Q2

REPORT INFORMATION
  Report Type: 
  Country: None (occurrence: None)
  Receive Date: 20060526
  Receipt Date: 20060517
  Transmission Date: 20061013
  Serious: Yes (Hospitalization)
  Sender: FDA-Public Use
  Company Number: FR-GLAXOSMITHKLINE-B0424891A

PATIENT
  Age: 93 Year
  Sex: Female

DRUGS (8)
  1. AUGMENTIN '125' [Suspect]
     Indication: LUNG DISORDER
     Dosage: 2G PER DAY
     Route: 042
     Dates: start: 20060419, end: 20060421
  2. CORDARONE [Concomitant]
     Route: 065
  3. VENTOLIN [Concomitant]
     Route: 065
  4. BECOTIDE [Concomitant]
     Route: 065
  5. ASPEGIC 1000 [Concomitant]
     Route: 065
  6. TANAKAN [Concomitant]
     Route: 065
  7. LEXOMIL [Concomitant]
     Indication: AGITATION
     Route: 065
     Dates: start: 20060419
  8. RED BLOOD CELLS [Concomitant]
     Route: 042
     Dates: start: 20060419

REACTIONS (14)
  - AGITATION [None]
  - ALANINE AMINOTRANSFERASE INCREASED [None]
  - ASPARTATE AMINOTRANSFERASE INCREASED [None]
  - BLOOD ALKALINE PHOSPHATASE INCREASED [None]
  - CARDIAC FAILURE [None]
  - CELL DEATH [None]
  - CHOLELITHIASIS [None]
  - ELECTROCARDIOGRAM T WAVE INVERSION [None]
  - GAMMA-GLUTAMYLTRANSFERASE INCREASED [None]
  - HAEMOGLOBIN DECREASED [None]
  - HEPATOCELLULAR DAMAGE [None]
  - MYOCARDIAL INFARCTION [None]
  - SECONDARY HYPOTHYROIDISM [None]
  - TROPONIN INCREASED [None]
